FAERS Safety Report 5246223-3 (Version None)
Quarter: 2007Q1

REPORT INFORMATION
  Report Type: 
  Country: None (occurrence: None)
  Receive Date: 20070221
  Receipt Date: 20070205
  Transmission Date: 20070707
  Serious: Yes (Disabling, Other)
  Sender: FDA-Public Use
  Company Number: 234239

PATIENT
  Age: 56 Year
  Sex: Male
  Weight: 79 kg

DRUGS (5)
  1. AVASTIN [Suspect]
     Indication: COLORECTAL CANCER
     Dosage: 400 MG, INTRAVENOUS
     Route: 042
     Dates: start: 20060517, end: 20061013
  2. FLUOROURACIL [Suspect]
     Indication: COLORECTAL CANCER
     Dosage: 2400 MG/M2, IV BOLUS 4200 MG, INTRAVENOUS
     Route: 042
     Dates: start: 20060517, end: 20060913
  3. FLUOROURACIL [Suspect]
     Indication: COLORECTAL CANCER
     Dosage: 2400 MG/M2, IV BOLUS 4200 MG, INTRAVENOUS
     Route: 042
     Dates: end: 20061113
  4. LEUCOVORIN CALCIUM [Concomitant]
  5. DEXAMETHASONE [Concomitant]

REACTIONS (5)
  - BILE DUCT OBSTRUCTION [None]
  - CHOLESTASIS [None]
  - DIARRHOEA [None]
  - DISEASE PROGRESSION [None]
  - METASTASES TO LIVER [None]
